FAERS Safety Report 4503865-8 (Version None)
Quarter: 2004Q4

REPORT INFORMATION
  Report Type: 
  Country: None (occurrence: None)
  Receive Date: 20041115
  Receipt Date: 20041102
  Transmission Date: 20050328
  Serious: Yes (Hospitalization)
  Sender: FDA-Public Use
  Company Number: 2004087455

PATIENT
  Age: 46 Year
  Sex: Male

DRUGS (6)
  1. ZOLOFT [Suspect]
     Indication: DEPRESSION
     Dosage: 50 MG
     Dates: start: 20041011, end: 20041026
  2. VITAMIN B1 AND B6 (PYRIDOXINE, THIAMINE) [Suspect]
     Indication: ALCOHOLIC
     Dates: start: 20041005, end: 20041026
  3. DIAZEPAM [Concomitant]
  4. OXAZEPAM [Concomitant]
  5. NICOTINAMIDE (NICOTINAMIDE) [Concomitant]
  6. FOLIC ACID [Concomitant]

REACTIONS (2)
  - ANGIONEUROTIC OEDEMA [None]
  - ERYTHEMA MULTIFORME [None]
